FAERS Safety Report 12166300 (Version 2)
Quarter: 2016Q1

REPORT INFORMATION
  Report Type: Spontaneous
  Country: US (occurrence: US)
  Receive Date: 20160309
  Receipt Date: 20160323
  Transmission Date: 20160526
  Serious: Yes (Hospitalization, Other)
  Sender: FDA-Public Use
  Company Number: US-BAUSCH-BL-2016-005436

PATIENT
  Sex: Female

DRUGS (1)
  1. CUPRIMINE [Suspect]
     Active Substance: PENICILLAMINE
     Indication: PRODUCT USED FOR UNKNOWN INDICATION
     Route: 048
     Dates: start: 1993

REACTIONS (4)
  - Cardiac failure congestive [Unknown]
  - Bacterial infection [Recovering/Resolving]
  - Hip arthroplasty [Unknown]
  - Femur fracture [Unknown]

NARRATIVE: CASE EVENT DATE: 2012
